FAERS Safety Report 5609737-X (Version None)
Quarter: 2008Q1

REPORT INFORMATION
  Report Type: 
  Country: None (occurrence: None)
  Receive Date: 20080131
  Receipt Date: 20070326
  Transmission Date: 20080703
  Serious: No
  Sender: FDA-Public Use
  Company Number: US-BAYER-200710914BCC

PATIENT
  Age: 27 Year
  Sex: Female
  Weight: 79 kg

DRUGS (2)
  1. ALEVE COLD AND SINUS [Suspect]
     Indication: NASOPHARYNGITIS
     Dosage: UNIT DOSE: 220 MG
     Route: 048
     Dates: start: 20070322, end: 20070323
  2. BIRTH CONTROL PILLS [Concomitant]

REACTIONS (4)
  - EYE SWELLING [None]
  - HYPERSENSITIVITY [None]
  - HYPOAESTHESIA [None]
  - PARAESTHESIA [None]
